FAERS Safety Report 9561417 (Version 1)
Quarter: 2013Q3

REPORT INFORMATION
  Report Type: Spontaneous
  Country: US (occurrence: US)
  Receive Date: 20130927
  Receipt Date: 20130927
  Transmission Date: 20140515
  Serious: No
  Sender: FDA-Public Use
  Company Number: US-BIOGENIDEC-2013BI058937

PATIENT
  Age: 50 Year
  Sex: Female

DRUGS (5)
  1. TECFIDERA [Suspect]
     Indication: PRODUCT USED FOR UNKNOWN INDICATION
  2. CORICIDIN HBP [Concomitant]
     Indication: RESPIRATORY TRACT CONGESTION
  3. CORICIDIN HBP [Concomitant]
     Indication: COUGH
  4. OMEGA 3 [Concomitant]
  5. CALCIUM 600 [Concomitant]

REACTIONS (3)
  - Nausea [Unknown]
  - Sinusitis [Unknown]
  - Pyrexia [Unknown]
